FAERS Safety Report 7442977-6 (Version None)
Quarter: 2011Q2

REPORT INFORMATION
  Report Type: 
  Country: None (occurrence: None)
  Receive Date: 20110428
  Receipt Date: 20110421
  Transmission Date: 20111010
  Serious: Yes (Hospitalization)
  Sender: FDA-Public Use
  Company Number: US-MERCK-1102USA01517

PATIENT
  Age: 84 Year
  Sex: Female

DRUGS (13)
  1. OMEGA-3 MARINE TRIGLYCERIDES [Concomitant]
     Route: 065
  2. LIPITOR [Concomitant]
     Indication: DYSLIPIDAEMIA
     Route: 065
  3. FOSAMAX [Suspect]
     Route: 048
  4. ENALAPRIL MALEATE [Concomitant]
     Indication: HYPERTENSION
     Route: 065
  5. METOPROLOL [Concomitant]
     Route: 065
  6. VITAMIN E [Concomitant]
     Route: 065
  7. UBIDECARENONE [Concomitant]
     Route: 065
  8. ASCORBIC ACID [Concomitant]
     Route: 065
  9. PRILOSEC [Concomitant]
     Route: 048
  10. VITAMINS (UNSPECIFIED) [Concomitant]
     Route: 065
  11. ASPIRIN [Concomitant]
     Route: 065
  12. DETROL LA [Concomitant]
     Indication: URGE INCONTINENCE
     Route: 065
  13. PLAVIX [Concomitant]
     Route: 065

REACTIONS (12)
  - FALL [None]
  - NAUSEA [None]
  - SALIVARY GLAND MASS [None]
  - HYPOACUSIS [None]
  - FEMUR FRACTURE [None]
  - IRON DEFICIENCY ANAEMIA [None]
  - CATARACT [None]
  - GASTROOESOPHAGEAL REFLUX DISEASE [None]
  - BACK PAIN [None]
  - CONFUSIONAL STATE [None]
  - ANAEMIA OF CHRONIC DISEASE [None]
  - TRANSIENT ISCHAEMIC ATTACK [None]
